FAERS Safety Report 6148156-7 (Version None)
Quarter: 2009Q2

REPORT INFORMATION
  Report Type: 
  Country: None (occurrence: None)
  Receive Date: 20090402
  Receipt Date: 20090108
  Transmission Date: 20091009
  Serious: No
  Sender: FDA-Public Use
  Company Number: 1000004718

PATIENT
  Age: 51 Year
  Sex: Male

DRUGS (5)
  1. BYSTOLIC [Suspect]
     Indication: BLOOD PRESSURE INCREASED
     Dosage: 5 MG (5 MG, 1 IN 1 D), ORAL; 5 MG (5 MG, 1 IN 1 D), ORAL
     Route: 048
     Dates: start: 20080912, end: 20081207
  2. BYSTOLIC [Suspect]
     Indication: BLOOD PRESSURE INCREASED
     Dosage: 5 MG (5 MG, 1 IN 1 D), ORAL; 5 MG (5 MG, 1 IN 1 D), ORAL
     Route: 048
     Dates: start: 20081209
  3. ASPIRIN [Concomitant]
  4. VYTORIN (EZETIMIBE, SIMVASTATIN0 (EZETIMIBE, SIMVASTATIN) [Concomitant]
  5. MULTI-VITAMIN [Concomitant]

REACTIONS (1)
  - EXTRASYSTOLES [None]
